FAERS Safety Report 5603391-9 (Version None)
Quarter: 2008Q1

REPORT INFORMATION
  Report Type: 
  Country: None (occurrence: None)
  Receive Date: 20080123
  Receipt Date: 20080103
  Transmission Date: 20080703
  Serious: No
  Sender: FDA-Public Use
  Company Number: 8028907

PATIENT
  Age: 7 Year
  Sex: Male
  Weight: 29 kg

DRUGS (2)
  1. EQUASYM [Suspect]
     Dosage: 25 MG
  2. EQUASYM [Suspect]
     Dosage: 30 MG 1/D
     Dates: start: 20070213

REACTIONS (3)
  - ANXIETY [None]
  - GASTROINTESTINAL PAIN [None]
  - TIC [None]
